FAERS Safety Report 9931504 (Version 2)
Quarter: 2014Q1

REPORT INFORMATION
  Report Type: Spontaneous
  Country: GR (occurrence: None)
  Receive Date: 20140214
  Receipt Date: 20140224
  Transmission Date: 20141002
  Serious: Yes (Hospitalization, Other)
  Sender: FDA-Public Use
  Company Number: GR-145523

PATIENT
  Age: 4 Year
  Sex: Female

DRUGS (1)
  1. WINRHO SD [Suspect]
     Indication: IMMUNE THROMBOCYTOPENIC PURPURA
     Dosage: 50 UG/KG INTRAVENOUS (NOT OTHERWISE SPECIFIED)
     Route: 042
     Dates: end: 2008

REACTIONS (10)
  - Haemolysis [None]
  - Vomiting [None]
  - Back pain [None]
  - Abdominal pain [None]
  - Haemoglobinuria [None]
  - Oliguria [None]
  - Renal impairment [None]
  - Blood urea increased [None]
  - Blood lactate dehydrogenase increased [None]
  - Blood bilirubin increased [None]
